FAERS Safety Report 4311376-8 (Version None)
Quarter: 2004Q1

REPORT INFORMATION
  Report Type: 
  Country: None (occurrence: None)
  Receive Date: 20040302
  Receipt Date: 20030422
  Transmission Date: 20041129
  Serious: Yes (Hospitalization)
  Sender: FDA-Public Use
  Company Number: BDI-005043

PATIENT
  Age: 43 Year
  Sex: Female

DRUGS (3)
  1. ISOVUE-300 [Suspect]
     Indication: ABDOMINAL PAIN LOWER
     Dosage: 100 ML ONCE IV
     Dates: start: 20030420, end: 20030420
  2. ISOVUE-300 [Suspect]
     Indication: COMPUTERISED TOMOGRAM
     Dosage: 100 ML ONCE IV
     Dates: start: 20030420, end: 20030420
  3. BLOOD PRESSURE MEDICATIONS [Concomitant]

REACTIONS (2)
  - RASH [None]
  - RESPIRATORY ARREST [None]
